FAERS Safety Report 20773566 (Version 1)
Quarter: 2022Q2

REPORT INFORMATION
  Report Type: Spontaneous
  Country: ES (occurrence: ES)
  Receive Date: 20220502
  Receipt Date: 20220502
  Transmission Date: 20220721
  Serious: Yes (Hospitalization)
  Sender: FDA-Public Use
  Company Number: ES-MYLANLABS-2022M1030170

PATIENT
  Age: 35 Year
  Sex: Female

DRUGS (2)
  1. HULIO [Suspect]
     Active Substance: ADALIMUMAB-FKJP
     Indication: Arthritis
     Dosage: UNK
     Dates: start: 20210408
  2. COMIRNATY [Suspect]
     Active Substance: TOZINAMERAN
     Indication: COVID-19
     Dosage: UNK
     Dates: start: 20210418, end: 20210418

REACTIONS (9)
  - Rash macular [Unknown]
  - Lip swelling [Unknown]
  - Swollen tongue [Unknown]
  - Fatigue [Unknown]
  - Eye pruritus [Unknown]
  - Feeling abnormal [Unknown]
  - Anxiety [Unknown]
  - Dyspnoea [Unknown]
  - Face oedema [Unknown]

NARRATIVE: CASE EVENT DATE: 20210419
